FAERS Safety Report 16415403 (Version 1)
Quarter: 2019Q2

REPORT INFORMATION
  Report Type: Spontaneous
  Country: PH (occurrence: PH)
  Receive Date: 20190611
  Receipt Date: 20190611
  Transmission Date: 20190711
  Serious: Yes (Other)
  Sender: FDA-Public Use
  Company Number: PH-B.I. PHARMACEUTICALS,INC./RIDGEFIELD-2019-BI-025851

PATIENT

DRUGS (1)
  1. GLYXAMBI [Suspect]
     Active Substance: EMPAGLIFLOZIN\LINAGLIPTIN
     Indication: PRODUCT USED FOR UNKNOWN INDICATION
     Dosage: UNIT DOSE 25/5
     Route: 065

REACTIONS (1)
  - Fournier^s gangrene [Unknown]
